FAERS Safety Report 5408468-9 (Version None)
Quarter: 2007Q3

REPORT INFORMATION
  Report Type: 
  Country: None (occurrence: None)
  Receive Date: 20070808
  Receipt Date: 20070731
  Transmission Date: 20080115
  Serious: Yes (Other)
  Sender: FDA-Public Use
  Company Number: CA-JNJFOC-20070800856

PATIENT

DRUGS (1)
  1. MICRONOR [Suspect]
     Indication: DRUG EXPOSURE VIA BREAST MILK

REACTIONS (2)
  - MUSCLE RIGIDITY [None]
  - WEIGHT DECREASED [None]
